FAERS Safety Report 8443938-0 (Version None)
Quarter: 2012Q2

REPORT INFORMATION
  Report Type: 
  Country: None (occurrence: None)
  Receive Date: 20120618
  Receipt Date: 20120608
  Transmission Date: 20120825
  Serious: No
  Sender: FDA-Public Use
  Company Number: US-B.I. PHARMACEUTICALS,INC./RIDGEFIELD-2012-BP-13359BP

PATIENT
  Age: 3 Year

DRUGS (1)
  1. ZANTAC 150 [Suspect]
     Dates: start: 20120608, end: 20120608

REACTIONS (1)
  - ACCIDENTAL OVERDOSE [None]
